FAERS Safety Report 15658617 (Version 3)
Quarter: 2019Q1

REPORT INFORMATION
  Report Type: Spontaneous
  Country: JP (occurrence: JP)
  Receive Date: 20181126
  Receipt Date: 20190206
  Transmission Date: 20190417
  Serious: Yes (Hospitalization, Other)
  Sender: FDA-Public Use
  Company Number: JP-SA-2018SA318874

PATIENT
  Age: 78 Year
  Sex: Male

DRUGS (2)
  1. ELPLAT [Suspect]
     Active Substance: OXALIPLATIN
     Indication: COLON CANCER
     Dosage: UNK UNK, QD ONCE A DAY
     Route: 041
  2. CAPECITABINE. [Suspect]
     Active Substance: CAPECITABINE
     Indication: CHEMOTHERAPY
     Dosage: UNK, UNK
     Route: 065

REACTIONS (8)
  - Hepatic artery aneurysm [Recovered/Resolved]
  - Haemobilia [Recovered/Resolved]
  - Haematemesis [Unknown]
  - Hepatic enzyme increased [Unknown]
  - Device occlusion [Recovered/Resolved]
  - Decreased appetite [Unknown]
  - Blood pressure decreased [Unknown]
  - Malaise [Unknown]
